FAERS Safety Report 8577617 (Version 2)
Quarter: 2012Q4

REPORT INFORMATION
  Report Type: 
  Country: AE (occurrence: US)
  Receive Date: 20120524
  Receipt Date: 20120831
  Transmission Date: 20130627
  Serious: Yes (Hospitalization)
  Sender: FDA-Public Use
  Company Number: US-BAYER-2012-050291

PATIENT
  Age: 22 Year
  Sex: Female

DRUGS (9)
  1. YAZ [Suspect]
     Dosage: UNK
     Dates: start: 2003
  2. YASMIN [Suspect]
     Dosage: UNK
     Dates: start: 2003
  3. NAPROXEN [Concomitant]
     Dosage: UNK
     Dates: start: 2003, end: 2004
  4. SYNTHROID [Concomitant]
     Dosage: UNK
     Dates: start: 2003, end: 2004
  5. ANTIBIOTICS [Concomitant]
     Dosage: UNK
     Dates: start: 2003, end: 2004
  6. LORTAB [Concomitant]
     Dosage: UNK
  7. IBUPROFEN [Concomitant]
     Dosage: UNK
  8. PHENERGAN [Concomitant]
     Dosage: UNK
  9. MAGNESIUM CITRATE [Concomitant]
     Dosage: UNK

REACTIONS (7)
  - Gallbladder disorder [None]
  - Pain [None]
  - Injury [None]
  - General physical health deterioration [None]
  - Anxiety [None]
  - Emotional distress [None]
  - Anhedonia [None]
